FAERS Safety Report 20710493 (Version 2)
Quarter: 2022Q2

REPORT INFORMATION
  Report Type: Spontaneous
  Country: SK (occurrence: SK)
  Receive Date: 20220414
  Receipt Date: 20220506
  Transmission Date: 20220720
  Serious: Yes (Hospitalization, Other)
  Sender: FDA-Public Use
  Company Number: SK-BoehringerIngelheim-2022-BI-164262

PATIENT
  Age: 70 Year
  Sex: Female
  Weight: 50 kg

DRUGS (7)
  1. DABIGATRAN [Suspect]
     Active Substance: DABIGATRAN
     Indication: Deep vein thrombosis
     Route: 048
     Dates: start: 20220307, end: 202203
  2. INSULIN ASPART [Concomitant]
     Active Substance: INSULIN ASPART
     Indication: Product used for unknown indication
     Dosage: 18-6-18 UNIT
     Route: 058
  3. EUTHYROX [Concomitant]
     Active Substance: LEVOTHYROXINE SODIUM
     Indication: Product used for unknown indication
  4. TELMISARTAN [Concomitant]
     Active Substance: TELMISARTAN
     Indication: Product used for unknown indication
  5. CARVEDIGAMMA [Concomitant]
     Indication: Product used for unknown indication
     Dosage: 6,25
  6. VEROGALID [Concomitant]
     Indication: Product used for unknown indication
  7. Kreon 25 000 [Concomitant]
     Indication: Product used for unknown indication

REACTIONS (4)
  - Normocytic anaemia [Not Recovered/Not Resolved]
  - Ulcer haemorrhage [Recovered/Resolved]
  - Melaena [Recovered/Resolved]
  - Intestinal haemorrhage [Recovered/Resolved]

NARRATIVE: CASE EVENT DATE: 20220301
